FAERS Safety Report 17440759 (Version 1)
Quarter: 2020Q1

REPORT INFORMATION
  Report Type: Spontaneous
  Country: US (occurrence: US)
  Receive Date: 20200220
  Receipt Date: 20200220
  Transmission Date: 20200409
  Serious: Yes (Other)
  Sender: FDA-Public Use
  Company Number: US-PFIZER INC-2020072268

PATIENT
  Age: 60 Year
  Sex: Female
  Weight: 77.11 kg

DRUGS (2)
  1. CHANTIX [Suspect]
     Active Substance: VARENICLINE TARTRATE
     Dosage: 1 MG, 2X/DAY
     Route: 048
     Dates: start: 200707
  2. CLORAZEPATE [Concomitant]
     Active Substance: CLORAZEPATE DIPOTASSIUM
     Indication: SLEEP DISORDER
     Dosage: 3.75 MG, 1X/DAY (3.75MG TABLET BY MOUTH EVERY NIGHT )
     Route: 048

REACTIONS (7)
  - Tremor [Not Recovered/Not Resolved]
  - Insomnia [Unknown]
  - Feeling jittery [Not Recovered/Not Resolved]
  - Pulmonary oedema [Unknown]
  - Intentional product misuse [Unknown]
  - Tension [Not Recovered/Not Resolved]
  - Dyspnoea [Unknown]

NARRATIVE: CASE EVENT DATE: 2017
